FAERS Safety Report 8244347-X (Version None)
Quarter: 2012Q1

REPORT INFORMATION
  Report Type: 
  Country: None (occurrence: None)
  Receive Date: 20120329
  Receipt Date: 20120321
  Transmission Date: 20120608
  Serious: Yes (Other)
  Sender: FDA-Public Use
  Company Number: JP-PFIZER INC-2012065166

PATIENT
  Age: 70 Year
  Sex: Male

DRUGS (2)
  1. DONEPEZIL [Concomitant]
     Dosage: UNK
     Route: 048
  2. VIAGRA [Suspect]
     Indication: ERECTILE DYSFUNCTION
     Dosage: 6 TABLETS/2-3 WEEKS
     Route: 048

REACTIONS (2)
  - MUSCLE RUPTURE [None]
  - FALL [None]
